FAERS Safety Report 10180360 (Version 1)
Quarter: 2014Q2

REPORT INFORMATION
  Report Type: Spontaneous
  Country: US (occurrence: US)
  Receive Date: 20140519
  Receipt Date: 20140519
  Transmission Date: 20141212
  Serious: No
  Sender: FDA-Public Use
  Company Number: US-AMGEN INC.-USASP2013079519

PATIENT
  Sex: Female

DRUGS (1)
  1. PROLIA [Suspect]
     Indication: PRODUCT USED FOR UNKNOWN INDICATION
     Dosage: UNK
     Route: 065
     Dates: start: 2012

REACTIONS (14)
  - Pruritus [Unknown]
  - Erythema [Unknown]
  - Dry skin [Unknown]
  - Skin exfoliation [Unknown]
  - Papule [Unknown]
  - Skin disorder [Unknown]
  - Skin haemorrhage [Unknown]
  - Pain of skin [Unknown]
  - Hyperaesthesia [Unknown]
  - Dermatitis contact [Unknown]
  - Back pain [Unknown]
  - Muscle spasms [Unknown]
  - Hypoaesthesia [Unknown]
  - Joint swelling [Unknown]
